FAERS Safety Report 17523821 (Version 2)
Quarter: 2020Q3

REPORT INFORMATION
  Report Type: Report from Study
  Country: US (occurrence: US)
  Receive Date: 20200310
  Receipt Date: 20200824
  Transmission Date: 20201102
  Serious: Yes (Hospitalization)
  Sender: FDA-Public Use
  Company Number: US-ACTELION-A-US2020-202871

PATIENT
  Sex: Male
  Weight: 145.13 kg

DRUGS (2)
  1. OPSUMIT [Suspect]
     Active Substance: MACITENTAN
     Indication: PULMONARY ARTERIAL HYPERTENSION
     Dosage: 10 MG, QD
     Route: 048
  2. OXYGEN. [Concomitant]
     Active Substance: OXYGEN

REACTIONS (6)
  - Fall [Unknown]
  - Pleural effusion [Unknown]
  - Fluid retention [Unknown]
  - Oedema [Unknown]
  - Weight decreased [Unknown]
  - Walking aid user [Unknown]
